FAERS Safety Report 8241535-3 (Version None)
Quarter: 2012Q1

REPORT INFORMATION
  Report Type: 
  Country: None (occurrence: None)
  Receive Date: 20120328
  Receipt Date: 20111021
  Transmission Date: 20120608
  Serious: Yes (Death)
  Sender: FDA-Public Use
  Company Number: US-COVIDIEN/TYCO HEALTHCARE/MALLINCKRODT-T201102268

PATIENT
  Age: 23 Year
  Sex: Female

DRUGS (4)
  1. METHADONE HCL [Suspect]
     Indication: PRODUCT USED FOR UNKNOWN INDICATION
     Dosage: TOOK FOUR 10 MG PILLS
  2. DILAUDID [Concomitant]
     Dosage: INGESTED HALF OF A 2 MG DILAUDID PILL
  3. MARIJUANA [Concomitant]
     Dosage: UNK
  4. FLEXERIL [Concomitant]
     Dosage: UNK

REACTIONS (1)
  - OVERDOSE [None]
